FAERS Safety Report 5519961-2 (Version None)
Quarter: 2007Q4

REPORT INFORMATION
  Report Type: 
  Country: None (occurrence: None)
  Receive Date: 20071116
  Receipt Date: 20070514
  Transmission Date: 20080405
  Serious: No
  Sender: FDA-Public Use
  Company Number: US-BRISTOL-MYERS SQUIBB COMPANY-13778832

PATIENT
  Sex: Female
  Weight: 88 kg

DRUGS (3)
  1. CHOLESTYRAMINE+ASPARTAME [Suspect]
     Indication: CHOLECYSTECTOMY
  2. CHOLESTYRAMINE+ASPARTAME [Suspect]
     Indication: BLOOD CHOLESTEROL INCREASED
  3. MOBIC [Concomitant]

REACTIONS (2)
  - DIARRHOEA [None]
  - DYSGEUSIA [None]
